FAERS Safety Report 10560194 (Version 1)
Quarter: 2014Q4

REPORT INFORMATION
  Report Type: Report from Study
  Country: CN (occurrence: CN)
  Receive Date: 20141103
  Receipt Date: 20141103
  Transmission Date: 20150529
  Serious: Yes (Hospitalization, Other)
  Sender: FDA-Public Use
  Company Number: CN-BAYER-2014-157582

PATIENT
  Age: 27 Year
  Sex: Male

DRUGS (1)
  1. BETAFERON [Suspect]
     Active Substance: INTERFERON BETA-1B
     Indication: RELAPSING-REMITTING MULTIPLE SCLEROSIS
     Dosage: 250 ?G/ML, QOD
     Route: 058
     Dates: start: 20130225

REACTIONS (5)
  - Aspartate aminotransferase increased [None]
  - Multiple sclerosis relapse [None]
  - Alanine aminotransferase increased [None]
  - Gamma-glutamyltransferase increased [None]
  - Blood bilirubin increased [None]

NARRATIVE: CASE EVENT DATE: 20141023
